FAERS Safety Report 6442108-5 (Version None)
Quarter: 2009Q4

REPORT INFORMATION
  Report Type: 
  Country: None (occurrence: None)
  Receive Date: 20091116
  Receipt Date: 20091103
  Transmission Date: 20100525
  Serious: Yes (Other)
  Sender: FDA-Public Use
  Company Number: PHHY2009ES47813

PATIENT
  Age: 74 Year
  Sex: Female

DRUGS (4)
  1. MYFORTIC [Suspect]
     Indication: RENAL TRANSPLANT
     Dosage: 1 G, BID
     Route: 048
     Dates: start: 20090504, end: 20090526
  2. SEPTRIN [Suspect]
     Dosage: 3 DIVIDED DOSES
     Route: 048
     Dates: start: 20090515, end: 20090526
  3. RAPAMUNE [Suspect]
     Indication: RENAL TRANSPLANT
     Dosage: 2 MG, QD
     Route: 048
     Dates: start: 20090521, end: 20090601
  4. TACROLIMUS [Concomitant]
     Indication: RENAL TRANSPLANT

REACTIONS (2)
  - HAEMATOTOXICITY [None]
  - PANCYTOPENIA [None]
